FAERS Safety Report 8662433 (Version 2)
Quarter: 2012Q4

REPORT INFORMATION
  Report Type: Report from Study
  Country: MX (occurrence: MX)
  Receive Date: 20120712
  Receipt Date: 20121114
  Transmission Date: 20130627
  Serious: Yes (Hospitalization)
  Sender: FDA-Public Use
  Company Number: MX-BRISTOL-MYERS SQUIBB COMPANY-16743874

PATIENT
  Age: 67 Year
  Sex: Male
  Weight: 55 kg

DRUGS (8)
  1. ERBITUX [Suspect]
     Indication: HEAD AND NECK CANCER
     Dosage: Reg2:250mg/m2,wkly day1,d15,IV:28Jun2012-ong.
     Route: 042
     Dates: start: 20120612
  2. CISPLATIN [Suspect]
     Indication: HEAD AND NECK CANCER
     Dosage: Day:1,Last dose:12Jun2012
     Route: 042
     Dates: start: 20120612
  3. 5-FLUOROURACIL [Suspect]
     Indication: HEAD AND NECK CANCER
     Dosage: Day 1-4, Last dose:15Jun2012.
     Route: 042
     Dates: start: 20120612
  4. METFORMIN [Concomitant]
     Indication: TYPE 2 DIABETES MELLITUS
  5. GLIBENCLAMIDE [Concomitant]
     Indication: TYPE 2 DIABETES MELLITUS
  6. ENALAPRIL [Concomitant]
     Indication: HYPERTENSION
  7. TRAMADOL [Concomitant]
  8. OMEPRAZOLE [Concomitant]

REACTIONS (3)
  - Mucosal inflammation [Recovered/Resolved]
  - Dehydration [Recovered/Resolved]
  - Subclavian vein thrombosis [Recovered/Resolved]
